FAERS Safety Report 7930973-1 (Version None)
Quarter: 2011Q4

REPORT INFORMATION
  Report Type: 
  Country: None (occurrence: None)
  Receive Date: 20111121
  Receipt Date: 20111117
  Transmission Date: 20120403
  Serious: Yes (Hospitalization)
  Sender: FDA-Public Use
  Company Number: US-GILEAD-2011-0044475

PATIENT
  Sex: Female

DRUGS (11)
  1. VITAMIN D [Concomitant]
  2. TYVASO [Concomitant]
  3. WELLBUTRIN XL [Concomitant]
  4. TRIAMTERENE AND HYDROCHLOROTHIAZIDE [Concomitant]
  5. FISH OIL [Concomitant]
  6. COUMADIN [Concomitant]
  7. REVATIO [Concomitant]
  8. LETAIRIS [Suspect]
     Indication: PULMONARY ARTERIAL HYPERTENSION
     Dosage: 10 MG, QD
     Route: 048
     Dates: start: 20080130
  9. ALPRAZOLAM [Concomitant]
  10. NEXIUM [Concomitant]
  11. CARTIA XT [Concomitant]

REACTIONS (1)
  - ROAD TRAFFIC ACCIDENT [None]
